FAERS Safety Report 18479284 (Version 1)
Quarter: 2020Q4

REPORT INFORMATION
  Report Type: Spontaneous
  Country: US (occurrence: US)
  Receive Date: 20201108
  Receipt Date: 20201108
  Transmission Date: 20210114
  Serious: Yes (Other)
  Sender: FDA-Public Use
  Company Number: None

PATIENT
  Age: 91 Year
  Sex: Male
  Weight: 71 kg

DRUGS (17)
  1. FAMOTIDINE 20 MG IV EVERY 12 HOURS [Concomitant]
     Dates: start: 20201105
  2. SENNA 1 TAB PO BID [Concomitant]
     Dates: start: 20201104
  3. THIAMINE 100 MG PO DAILY [Concomitant]
     Dates: start: 20201104
  4. ZINC SULFATE 220 MG PO DAILY [Concomitant]
     Dates: start: 20201105
  5. HALOPERIDOL 5 MG IV PUSH ONCE [Concomitant]
     Dates: start: 20201108
  6. LEVOTHYROXINE 75 MCG PO DAILY [Concomitant]
     Dates: start: 20201105
  7. ADVAIR DISKUS 250/50 MCG INHALED BID [Concomitant]
     Dates: start: 20201104
  8. LEVOTHYROXINE. [Concomitant]
     Active Substance: LEVOTHYROXINE
  9. DOCUSATE 100 MG PO BID [Concomitant]
     Dates: start: 20201104
  10. NORCO 5, 1 TAB PO X 1 [Concomitant]
     Dates: start: 20201108
  11. ASPIRIN 81 MG ORAL EVERY EVENING [Concomitant]
     Dates: start: 20201104
  12. CHOLECALCIFEROL 1000 IU ORAL DAILY [Concomitant]
     Dates: start: 20201105
  13. DEXAMETHASONE 6 MG IV PUSH BID [Concomitant]
     Dates: start: 20201104
  14. MELATONIN 3 MG PO QHS [Concomitant]
     Dates: start: 20201107
  15. REMDESIVIR 100 MG IV DAILY X 4 DOSES [Suspect]
     Active Substance: REMDESIVIR
     Indication: COVID-19
     Route: 042
     Dates: start: 20201105, end: 20201108
  16. ASCORBIC ACID 500 MG ORAL BID [Concomitant]
     Dates: start: 20201104
  17. TRAZODONE 50 MG PO X 1 [Concomitant]
     Dates: start: 20201107

REACTIONS (1)
  - Bradycardia [None]

NARRATIVE: CASE EVENT DATE: 20201108
